FAERS Safety Report 17598933 (Version 1)
Quarter: 2020Q1

REPORT INFORMATION
  Report Type: Report from Study
  Country: CH (occurrence: CH)
  Receive Date: 20200330
  Receipt Date: 20200330
  Transmission Date: 20200409
  Serious: Yes (Congenital Anomaly)
  Sender: FDA-Public Use
  Company Number: CH-TEVA-2020-CH-1215112

PATIENT

DRUGS (5)
  1. METOCLOPRAMIDE. [Suspect]
     Active Substance: METOCLOPRAMIDE
     Route: 064
  2. CLOTIAPINE [Suspect]
     Active Substance: CLOTHIAPINE
     Route: 064
  3. MEFENAMIC ACID. [Suspect]
     Active Substance: MEFENAMIC ACID
     Route: 064
  4. PROMAZINE [Suspect]
     Active Substance: PROMAZINE
     Route: 064
  5. VENLAFAXINE [Suspect]
     Active Substance: VENLAFAXINE HYDROCHLORIDE
     Route: 064

REACTIONS (2)
  - Foetal exposure during pregnancy [Unknown]
  - Ectrodactyly [Unknown]
